FAERS Safety Report 23478567 (Version 1)
Quarter: 2024Q1

REPORT INFORMATION
  Report Type: Spontaneous
  Country: IT (occurrence: IT)
  Receive Date: 20240205
  Receipt Date: 20240205
  Transmission Date: 20240409
  Serious: No
  Sender: FDA-Public Use
  Company Number: None

PATIENT
  Age: 59 Year
  Sex: Female
  Weight: 95 kg

DRUGS (2)
  1. CABOMETYX [Suspect]
     Active Substance: CABOZANTINIB S-MALATE
     Indication: Renal cancer metastatic
     Dosage: 40 MG (ONGOING THERAPY WITH REDUCED DOSAGE AFTER ONSET OF ADR - 40 MG/DAY)
     Route: 048
  2. NIVOLUMAB [Suspect]
     Active Substance: NIVOLUMAB
     Indication: Renal cancer metastatic
     Dosage: START OF THERAPY 01/08/2023 - THERAPY EVERY 15 DAYS - 6TH CYCLE
     Route: 042
     Dates: start: 20231011, end: 20231011

REACTIONS (7)
  - Petechiae [Recovering/Resolving]
  - Blood uric acid increased [Recovering/Resolving]
  - Transaminases increased [Recovering/Resolving]
  - Gingival bleeding [Recovering/Resolving]
  - Blood thyroid stimulating hormone increased [Recovering/Resolving]
  - Stomatitis [Recovering/Resolving]
  - Off label use [Unknown]

NARRATIVE: CASE EVENT DATE: 20231001
